FAERS Safety Report 25036820 (Version 1)
Quarter: 2025Q1

REPORT INFORMATION
  Report Type: Spontaneous
  Country: CA (occurrence: CA)
  Receive Date: 20250304
  Receipt Date: 20250304
  Transmission Date: 20250408
  Serious: Yes (Other)
  Sender: MYLAN
  Company Number: CA-MYLANLABS-2025M1017256

PATIENT
  Sex: Female
  Weight: 47.62 kg

DRUGS (2)
  1. DILANTIN [Suspect]
     Active Substance: PHENYTOIN
     Indication: Epilepsy
  2. PHENOBARBITAL [Concomitant]
     Active Substance: PHENOBARBITAL

REACTIONS (7)
  - Brain injury [Unknown]
  - Drop attacks [Unknown]
  - Lyme disease [Not Recovered/Not Resolved]
  - Fall [Unknown]
  - Balance disorder [Not Recovered/Not Resolved]
  - Residual symptom [Unknown]
  - Vertigo positional [Unknown]
